FAERS Safety Report 5956103-3 (Version None)
Quarter: 2008Q4

REPORT INFORMATION
  Report Type: 
  Country: None (occurrence: None)
  Receive Date: 20081113
  Receipt Date: 20081103
  Transmission Date: 20090506
  Serious: Yes (Hospitalization)
  Sender: FDA-Public Use
  Company Number: CLOF-1000334

PATIENT
  Age: 21 Year

DRUGS (1)
  1. CLOLAR [Suspect]
     Indication: ACUTE LEUKAEMIA
     Dosage: INTRAVENOUS
     Route: 042

REACTIONS (2)
  - CONVULSION [None]
  - INFUSION RELATED REACTION [None]
